FAERS Safety Report 10239082 (Version 1)
Quarter: 2014Q2

REPORT INFORMATION
  Report Type: Spontaneous
  Country: FR (occurrence: FR)
  Receive Date: 20140616
  Receipt Date: 20140616
  Transmission Date: 20141212
  Serious: Yes (Hospitalization)
  Sender: FDA-Public Use
  Company Number: FR-PFIZER INC-2014161694

PATIENT
  Age: 78 Year
  Sex: Male

DRUGS (1)
  1. CORDARONE [Suspect]
     Indication: BRADYCARDIA
     Dosage: 200 MG, DAILY
     Route: 048
     Dates: start: 2011, end: 201405

REACTIONS (3)
  - Computerised tomogram thorax abnormal [Unknown]
  - Hepatocellular injury [Not Recovered/Not Resolved]
  - Off label use [Unknown]
